FAERS Safety Report 16531401 (Version 3)
Quarter: 2019Q3

REPORT INFORMATION
  Report Type: Spontaneous
  Country: IL (occurrence: IL)
  Receive Date: 20190705
  Receipt Date: 20190912
  Transmission Date: 20191004
  Serious: Yes (Death, Other)
  Sender: FDA-Public Use
  Company Number: IL-009507513-1907ISR001647

PATIENT
  Age: 87 Year
  Sex: Male

DRUGS (2)
  1. KEYTRUDA [Suspect]
     Active Substance: PEMBROLIZUMAB
     Indication: MALIGNANT URINARY TRACT NEOPLASM
     Dosage: UNK
     Dates: start: 20190602
  2. KEYTRUDA [Suspect]
     Active Substance: PEMBROLIZUMAB
     Dosage: 2 UNK
     Dates: start: 20190623

REACTIONS (11)
  - Septic shock [Unknown]
  - Transaminases increased [Recovering/Resolving]
  - Peripheral sensory neuropathy [Unknown]
  - Dysphagia [Unknown]
  - Death [Fatal]
  - Atrioventricular block [Unknown]
  - Pneumonia aspiration [Unknown]
  - Hepatitis [Unknown]
  - Myocarditis [Unknown]
  - Troponin increased [Recovering/Resolving]
  - Myositis [Unknown]

NARRATIVE: CASE EVENT DATE: 2019
